FAERS Safety Report 7470487-9 (Version None)
Quarter: 2011Q2

REPORT INFORMATION
  Report Type: 
  Country: None (occurrence: None)
  Receive Date: 20110510
  Receipt Date: 20110429
  Transmission Date: 20111010
  Serious: Yes (Hospitalization, Other)
  Sender: FDA-Public Use
  Company Number: US-MERCK-0802USA04810

PATIENT
  Age: 55 Year
  Sex: Female
  Weight: 57 kg

DRUGS (10)
  1. ASPIRIN [Concomitant]
     Route: 048
  2. FOSAMAX [Suspect]
     Route: 048
     Dates: start: 20000601, end: 20051201
  3. ALLEGRA [Concomitant]
     Route: 048
  4. ESTRACE [Concomitant]
     Route: 048
  5. FOSAMAX [Suspect]
     Indication: OSTEOPOROSIS
     Route: 048
     Dates: start: 20000601, end: 20051201
  6. FOSAMAX [Suspect]
     Indication: OSTEOPENIA
     Route: 048
     Dates: start: 20000601, end: 20051201
  7. FOSAMAX [Suspect]
     Route: 048
     Dates: start: 20000601, end: 20051201
  8. ZOCOR [Concomitant]
     Route: 048
  9. CALCIUM (UNSPECIFIED) [Concomitant]
     Route: 048
  10. VITAMIN E [Concomitant]
     Route: 048

REACTIONS (27)
  - PALPITATIONS [None]
  - COLON ADENOMA [None]
  - UPPER-AIRWAY COUGH SYNDROME [None]
  - ANXIETY [None]
  - OSTEONECROSIS OF JAW [None]
  - MUSCLE SPASMS [None]
  - INTERVERTEBRAL DISC DEGENERATION [None]
  - DENTAL CARIES [None]
  - OEDEMA PERIPHERAL [None]
  - ERYTHEMA [None]
  - SPINAL OSTEOARTHRITIS [None]
  - BLOOD POTASSIUM INCREASED [None]
  - CHANGE OF BOWEL HABIT [None]
  - DEPRESSIVE SYMPTOM [None]
  - HAEMATURIA [None]
  - BONE LOSS [None]
  - DERMATITIS [None]
  - GINGIVAL DISORDER [None]
  - LUMBAR SPINAL STENOSIS [None]
  - PERIODONTAL INFECTION [None]
  - PAIN IN JAW [None]
  - TEMPOROMANDIBULAR JOINT SYNDROME [None]
  - ARTHRALGIA [None]
  - SQUAMOUS CELL CARCINOMA [None]
  - CYST [None]
  - IMPAIRED HEALING [None]
  - INTERVERTEBRAL DISC PROTRUSION [None]
